FAERS Safety Report 8113576-8 (Version None)
Quarter: 2012Q1

REPORT INFORMATION
  Report Type: 
  Country: None (occurrence: None)
  Receive Date: 20120131
  Receipt Date: 20120116
  Transmission Date: 20120608
  Serious: Yes (Hospitalization)
  Sender: FDA-Public Use
  Company Number: 2012-026

PATIENT
  Age: 50 Year
  Sex: Female
  Weight: 80 kg

DRUGS (5)
  1. PALEXIA (TAPENTADOL HYDROCHLORIDE) [Concomitant]
  2. PRIALT [Suspect]
     Indication: PAIN
     Dosage: SEE IMAGE
     Route: 037
     Dates: start: 20110502, end: 20110506
  3. PRIALT [Suspect]
     Indication: PAIN
     Dosage: SEE IMAGE
     Route: 037
     Dates: start: 20110516, end: 20110617
  4. PRIALT [Suspect]
     Indication: PAIN
     Dosage: SEE IMAGE
     Route: 037
     Dates: start: 20110506, end: 20110516
  5. PRIALT [Suspect]
     Indication: PAIN
     Dosage: SEE IMAGE
     Route: 037
     Dates: start: 20110414, end: 20110502

REACTIONS (8)
  - PANIC ATTACK [None]
  - PAIN [None]
  - FEAR OF DEATH [None]
  - RESTLESSNESS [None]
  - BURNING SENSATION [None]
  - HYPERTENSIVE CRISIS [None]
  - FEELING COLD [None]
  - DEPRESSION [None]
